FAERS Safety Report 9292328 (Version 2)
Quarter: 2013Q3

REPORT INFORMATION
  Report Type: Spontaneous
  Country: BR (occurrence: BR)
  Receive Date: 20130516
  Receipt Date: 20130920
  Transmission Date: 20140515
  Serious: Yes (Life-Threatening)
  Sender: FDA-Public Use
  Company Number: PHHY2013BR048453

PATIENT
  Sex: Female

DRUGS (7)
  1. FORADIL [Suspect]
     Dosage: UNK UKN, UNK
  2. MARAX [Suspect]
     Indication: BRONCHITIS
     Dosage: UNK UKN, UNK
  3. FRANOL [Suspect]
     Dosage: UNK UKN, UNK
  4. GLUCOSE [Concomitant]
     Dosage: UNK UKN, UNK
  5. AMINOPHYLLINE [Concomitant]
     Dosage: UNK UKN, UNK
  6. DECADRON [Concomitant]
     Dosage: UNK UKN, UNK
     Route: 042
  7. OXYGEN [Concomitant]
     Dosage: UNK UKN, UNK

REACTIONS (3)
  - General physical health deterioration [Unknown]
  - Dyspnoea [Unknown]
  - Drug ineffective [Unknown]
